FAERS Safety Report 20018508 (Version 1)
Quarter: 2021Q4

REPORT INFORMATION
  Report Type: Other
  Country: AR (occurrence: AR)
  Receive Date: 20211101
  Receipt Date: 20211101
  Transmission Date: 20220303
  Serious: No
  Sender: FDA-Public Use
  Company Number: AR-TOLMAR, INC.-21AR029570

PATIENT
  Age: 11 Year
  Sex: Male

DRUGS (1)
  1. ELIGARD [Suspect]
     Active Substance: LEUPROLIDE ACETATE
     Indication: Precocious puberty
     Dosage: 45 MILLIGRAM
     Route: 058
     Dates: start: 20210806

REACTIONS (1)
  - Application site induration [Not Recovered/Not Resolved]

NARRATIVE: CASE EVENT DATE: 20210806
